FAERS Safety Report 10694701 (Version 3)
Quarter: 2015Q3

REPORT INFORMATION
  Report Type: Spontaneous
  Country: US (occurrence: US)
  Receive Date: 20150107
  Receipt Date: 20150728
  Transmission Date: 20151125
  Serious: Yes (Hospitalization, Other)
  Sender: FDA-Public Use
  Company Number: US-BAYER-2015-001505

PATIENT
  Age: 27 Year
  Sex: Female
  Weight: 113.38 kg

DRUGS (1)
  1. MIRENA [Suspect]
     Active Substance: LEVONORGESTREL
     Dosage: 20 MCG/24HR, CONT
     Route: 015
     Dates: start: 200309, end: 20051221

REACTIONS (7)
  - Uterine perforation [None]
  - Pregnancy with contraceptive device [None]
  - Blighted ovum [None]
  - Injury [None]
  - Pain [None]
  - Device issue [None]
  - Drug ineffective [None]

NARRATIVE: CASE EVENT DATE: 200310
